FAERS Safety Report 6093013-8 (Version None)
Quarter: 2009Q1

REPORT INFORMATION
  Report Type: 
  Country: None (occurrence: None)
  Receive Date: 20090224
  Receipt Date: 20090211
  Transmission Date: 20090719
  Serious: Yes (Hospitalization)
  Sender: FDA-Public Use
  Company Number: 231268K09USA

PATIENT
  Age: 18 Year
  Sex: Female

DRUGS (3)
  1. REBIF [Suspect]
     Indication: MULTIPLE SCLEROSIS
     Dosage: 44 MCG, 3 IN 1 WEEKS, SUBCUTANEOUS
     Route: 058
     Dates: start: 20081124
  2. IMMUNE GLOBULIN (HUMAN) [Concomitant]
  3. STEROIDS (CORTICOSTEROIDS) [Concomitant]

REACTIONS (7)
  - ABNORMAL SENSATION IN EYE [None]
  - DIPLOPIA [None]
  - INFLUENZA LIKE ILLNESS [None]
  - INJECTION SITE IRRITATION [None]
  - MASTICATION DISORDER [None]
  - PARAESTHESIA [None]
  - VISUAL IMPAIRMENT [None]
